FAERS Safety Report 9780742 (Version 2)
Quarter: 2013Q4

REPORT INFORMATION
  Report Type: Report from Study
  Country: US (occurrence: US)
  Receive Date: 20131224
  Receipt Date: 20131224
  Transmission Date: 20140711
  Serious: Yes (Other)
  Sender: FDA-Public Use
  Company Number: US-ROCHE-1226221

PATIENT
  Age: 63 Year
  Sex: Female
  Weight: 101.24 kg

DRUGS (11)
  1. HERCEPTIN [Suspect]
     Indication: BREAST CANCER METASTATIC
     Route: 042
     Dates: start: 20120515
  2. HERCEPTIN [Suspect]
     Route: 042
     Dates: start: 20131029
  3. PERJETA [Suspect]
     Indication: BREAST CANCER
     Route: 042
     Dates: start: 20131029
  4. AMLODIPIN [Concomitant]
     Indication: HYPERTENSION
     Route: 048
     Dates: start: 20130524
  5. VITAMIN D3 [Concomitant]
     Indication: MUSCULAR WEAKNESS
     Route: 048
     Dates: start: 20120322
  6. VALTREX [Concomitant]
     Route: 048
     Dates: start: 20120607, end: 20120614
  7. PROCHLORPERAZINE [Concomitant]
     Indication: NAUSEA
     Route: 048
     Dates: start: 20120223
  8. VICODIN [Concomitant]
     Indication: PAIN
     Route: 048
     Dates: start: 20130424
  9. AZITHROMYCIN [Concomitant]
     Indication: INFECTION
     Route: 048
     Dates: start: 20130604, end: 20130607
  10. B COMPLEX [Concomitant]
     Indication: VITAMIN SUPPLEMENTATION
     Route: 048
     Dates: start: 20120322
  11. TAXOTERE [Concomitant]
     Indication: BREAST CANCER
     Route: 042
     Dates: start: 20131029

REACTIONS (3)
  - Blood potassium decreased [Not Recovered/Not Resolved]
  - Vision blurred [Recovered/Resolved]
  - Rash [Recovered/Resolved]
